FAERS Safety Report 5774773-X (Version None)
Quarter: 2008Q2

REPORT INFORMATION
  Report Type: 
  Country: None (occurrence: None)
  Receive Date: 20080612
  Receipt Date: 20080530
  Transmission Date: 20081010
  Serious: Yes (Other)
  Sender: FDA-Public Use
  Company Number: PPC200800007

PATIENT
  Age: 50 Year
  Sex: Female

DRUGS (15)
  1. CEFAZOLIN [Suspect]
     Indication: ANTI-INFECTIVE THERAPY
     Dosage: 1 GM, 1 IN 24 HR, INTRAVENOUS
     Route: 042
  2. ACETAMINOPHEN [Concomitant]
  3. EPOETIN ALFA (EPOETIN ALFA) [Concomitant]
  4. HEPARIN [Concomitant]
  5. METOPROLOL TARTRATE [Concomitant]
  6. SEVELAMER (SEVELAMER) [Concomitant]
  7. SENNOSIDES [Concomitant]
  8. MONTELUKAST SODIUM [Concomitant]
  9. LORATADINE [Concomitant]
  10. PANTOPRAZOLE SODIUM [Concomitant]
  11. BISACODYL (BISACODYL) [Concomitant]
  12. CAFFEINE CITRATE [Concomitant]
  13. HYDROMORPHONE HCL [Concomitant]
  14. DOLASETRON (DOLASETRON) [Concomitant]
  15. ALBUTEROL IPRATROPIUM BROMIDE SOLUTION [Concomitant]

REACTIONS (5)
  - CATHETER SITE HAEMORRHAGE [None]
  - HAEMATOCRIT DECREASED [None]
  - HAEMOGLOBIN DECREASED [None]
  - HYPOPROTHROMBINAEMIA [None]
  - INTERNATIONAL NORMALISED RATIO INCREASED [None]
